FAERS Safety Report 6297596-4 (Version None)
Quarter: 2009Q3

REPORT INFORMATION
  Report Type: 
  Country: None (occurrence: None)
  Receive Date: 20090805
  Receipt Date: 20090723
  Transmission Date: 20100115
  Serious: Yes (Hospitalization)
  Sender: FDA-Public Use
  Company Number: PHHY2009CA30906

PATIENT
  Sex: Female

DRUGS (3)
  1. SANDOSTATIN LAR [Suspect]
     Indication: CARCINOID TUMOUR
     Dosage: 20 MG EVERY 4 WEEKS
     Route: 030
     Dates: start: 20090526
  2. SANDOSTATIN LAR [Suspect]
     Dosage: 30 MG EVERY 4 WEEKS
     Route: 030
     Dates: start: 20090720
  3. SANDOSTATIN [Suspect]
     Dosage: 100 UG, TID
     Route: 058

REACTIONS (8)
  - DIARRHOEA [None]
  - FATIGUE [None]
  - FLUSHING [None]
  - GALLBLADDER OPERATION [None]
  - LIVER OPERATION [None]
  - MUSCLE SPASMS [None]
  - OCULAR HYPERAEMIA [None]
  - OOPHORECTOMY [None]
